FAERS Safety Report 7709558-8 (Version None)
Quarter: 2011Q3

REPORT INFORMATION
  Report Type: 
  Country: None (occurrence: None)
  Receive Date: 20110825
  Receipt Date: 20110817
  Transmission Date: 20111222
  Serious: Yes (Hospitalization, Other)
  Sender: FDA-Public Use
  Company Number: ES-JNJFOC-20110808415

PATIENT
  Age: 28 Year
  Sex: Male

DRUGS (3)
  1. REMICADE [Suspect]
     Indication: CROHN'S DISEASE
     Route: 042
  2. HYDROCORTISONE [Concomitant]
     Indication: HYPERSENSITIVITY
  3. DEXCHLORPHENIRAMINE MALEATE [Concomitant]
     Indication: HYPERSENSITIVITY

REACTIONS (1)
  - AGRANULOCYTOSIS [None]
